FAERS Safety Report 13243877 (Version 1)
Quarter: 2017Q1

REPORT INFORMATION
  Report Type: Spontaneous
  Country: DE (occurrence: DE)
  Receive Date: 20170216
  Receipt Date: 20170216
  Transmission Date: 20170428
  Serious: Yes (Other)
  Sender: FDA-Public Use
  Company Number: DE-009507513-1702DEU003700

PATIENT
  Sex: Female

DRUGS (1)
  1. IMPLANON [Suspect]
     Active Substance: ETONOGESTREL
     Indication: CONTRACEPTION
     Dosage: UNK
     Route: 059
     Dates: start: 20161007, end: 20170206

REACTIONS (3)
  - Unintended pregnancy [Unknown]
  - Maternal exposure during pregnancy [Unknown]
  - Pregnancy on contraceptive [Unknown]

NARRATIVE: CASE EVENT DATE: 20170109
